FAERS Safety Report 9969772 (Version 2)
Quarter: 2014Q1

REPORT INFORMATION
  Report Type: Spontaneous
  Country: DE (occurrence: DE)
  Receive Date: 20140306
  Receipt Date: 20140326
  Transmission Date: 20141002
  Serious: Yes (Other)
  Sender: FDA-Public Use
  Company Number: DE-JNJFOC-20140301820

PATIENT
  Age: 7 Decade
  Sex: Female

DRUGS (2)
  1. SIMPONI [Suspect]
     Indication: PRODUCT USED FOR UNKNOWN INDICATION
     Route: 058
     Dates: start: 201206
  2. DICLOFENAC [Concomitant]
     Dosage: LONG LASTING
     Route: 065

REACTIONS (5)
  - Thrombophlebitis [Unknown]
  - Glaucoma [Unknown]
  - Blindness [Unknown]
  - Joint ankylosis [Unknown]
  - Abdominal operation [Unknown]
